FAERS Safety Report 8984700 (Version 1)
Quarter: 2012Q4

REPORT INFORMATION
  Report Type: 
  Country: US (occurrence: US)
  Receive Date: 20121226
  Receipt Date: 20121226
  Transmission Date: 20130627
  Serious: Yes (Hospitalization)
  Sender: FDA-Public Use
  Company Number: US-BAYER-2012-133372

PATIENT
  Age: 47 Year
  Sex: Female
  Weight: 68.9 kg

DRUGS (13)
  1. SAFYRAL [Suspect]
     Dosage: UNK
     Dates: start: 20120510, end: 20120902
  2. MIDOL [Concomitant]
  3. SOMA [Concomitant]
  4. XANAX [Concomitant]
  5. XANAX [Concomitant]
  6. ROCEPHIN [Concomitant]
     Dosage: 1 g, UNK
     Route: 042
  7. TORADOL [Concomitant]
     Dosage: 30 mg, UNK
     Route: 042
  8. DIAZEPAM [Concomitant]
     Dosage: 5 mg, UNK
     Route: 048
  9. PROAIR INHALER [Concomitant]
  10. LEVOFLOXACIN [Concomitant]
     Dosage: 750 mg, UNK
     Route: 048
  11. HYDROCODONE SUSPENSION [Concomitant]
     Route: 048
  12. DOXYCYCLINE HYCLATE [Concomitant]
     Dosage: 100 mg, BID
     Route: 048
  13. VALIUM [Concomitant]

REACTIONS (2)
  - Deep vein thrombosis [None]
  - Pulmonary embolism [None]
